FAERS Safety Report 7657275-5 (Version None)
Quarter: 2011Q3

REPORT INFORMATION
  Report Type: 
  Country: None (occurrence: None)
  Receive Date: 20110804
  Receipt Date: 20110726
  Transmission Date: 20111222
  Serious: Yes (Death, Life-Threatening, Hospitalization, Other)
  Sender: FDA-Public Use
  Company Number: PHHY2011JP19626

PATIENT
  Sex: Male
  Weight: 51 kg

DRUGS (17)
  1. AFINITOR [Suspect]
     Indication: RENAL CELL CARCINOMA
     Dosage: 10 MG, QD
     Route: 048
     Dates: start: 20100630, end: 20100820
  2. AFINITOR [Suspect]
     Dosage: 10 MG, QD
     Route: 048
     Dates: start: 20100831, end: 20110111
  3. ADONA [Concomitant]
     Indication: RENAL CELL CARCINOMA
     Dosage: 90 MG, UNK
     Route: 048
     Dates: start: 20100413, end: 20100820
  4. URSO 250 [Concomitant]
     Indication: RENAL CELL CARCINOMA
     Dosage: 600 MG, UNK
     Route: 048
     Dates: start: 20100616, end: 20100820
  5. SUNITINIB MALATE [Concomitant]
     Indication: RENAL CELL CARCINOMA
     Dosage: 50 MG, UNK
     Route: 048
     Dates: start: 20100210, end: 20100601
  6. ETODOLAC [Concomitant]
     Indication: RENAL CELL CARCINOMA
     Dosage: 400 MG, UNK
     Route: 048
     Dates: start: 20100907, end: 20110201
  7. BETAMETHASONE [Concomitant]
     Indication: RENAL CELL CARCINOMA
     Dosage: 2 MG, UNK
     Route: 048
     Dates: start: 20101019, end: 20110201
  8. TRANSAMIN [Concomitant]
     Indication: RENAL CELL CARCINOMA
     Dosage: 750 MG, UNK
     Route: 048
     Dates: start: 20100413, end: 20100820
  9. TRAMADOL HYDROCHLORIDE [Concomitant]
     Indication: RENAL CELL CARCINOMA
     Dosage: 50 MG, UNK
     Route: 048
     Dates: start: 20101118, end: 20101201
  10. BIOFERMIN [Concomitant]
     Indication: PROPHYLAXIS
     Dosage: 3 G, UNK
     Route: 048
     Dates: start: 20101007, end: 20110201
  11. ZOMETA [Concomitant]
     Indication: RENAL CELL CARCINOMA
     Dosage: UNK UKN, UNK
     Route: 041
     Dates: start: 20101116, end: 20110111
  12. SUNITINIB MALATE [Concomitant]
     Dosage: 37.5 MG, UNK
     Route: 048
     Dates: end: 20100601
  13. LANSOPRAZOLE [Concomitant]
     Indication: PROPHYLAXIS
     Dosage: 15 MG, UNK
     Route: 048
     Dates: start: 20100907
  14. BLOOD TRANSFUSION, AUXILIARY PRODUCTS [Concomitant]
     Dosage: UNK UKN, UNK
  15. CLAFORAN [Concomitant]
     Indication: PNEUMONIA
     Dosage: 2 G, DAILY
     Dates: start: 20110125, end: 20110131
  16. AZUNOL [Concomitant]
     Indication: PROPHYLAXIS
     Dosage: 5 ML, UNK
     Route: 048
     Dates: start: 20100630, end: 20100820
  17. FERROUS SULFATE TAB [Concomitant]
     Indication: RENAL CELL CARCINOMA
     Dosage: 105 MG, UNK
     Route: 048
     Dates: start: 20100421, end: 20100820

REACTIONS (9)
  - BLOOD LACTATE DEHYDROGENASE INCREASED [None]
  - ASPARTATE AMINOTRANSFERASE INCREASED [None]
  - HAEMOGLOBIN DECREASED [None]
  - NEOPLASM PROGRESSION [None]
  - LYMPHOCYTE COUNT DECREASED [None]
  - C-REACTIVE PROTEIN INCREASED [None]
  - PNEUMONIA [None]
  - NEOPLASM MALIGNANT [None]
  - BLOOD UREA INCREASED [None]
